FAERS Safety Report 14666815 (Version 1)
Quarter: 2018Q1

REPORT INFORMATION
  Report Type: Spontaneous
  Country: US (occurrence: US)
  Receive Date: 20180322
  Receipt Date: 20180322
  Transmission Date: 20180509
  Serious: No
  Sender: FDA-Public Use
  Company Number: US-CELGENEUS-USA-20180306717

PATIENT
  Age: 62 Year
  Sex: Female

DRUGS (3)
  1. METAXALONE. [Concomitant]
     Active Substance: METAXALONE
     Indication: SCIATICA
     Route: 065
     Dates: start: 201703
  2. OTEZLA [Suspect]
     Active Substance: APREMILAST
     Indication: PSORIATIC ARTHROPATHY
     Dosage: 60 MILLIGRAM
     Route: 048
     Dates: start: 2018
  3. NABUMETONE. [Concomitant]
     Active Substance: NABUMETONE
     Indication: SCIATICA
     Route: 065
     Dates: start: 201703

REACTIONS (1)
  - Sciatica [Not Recovered/Not Resolved]

NARRATIVE: CASE EVENT DATE: 20180316
